FAERS Safety Report 20495476 (Version 1)
Quarter: 2022Q1

REPORT INFORMATION
  Report Type: Spontaneous
  Country: GB (occurrence: GB)
  Receive Date: 20220221
  Receipt Date: 20220221
  Transmission Date: 20220424
  Serious: Yes (Hospitalization, Other)
  Sender: FDA-Public Use
  Company Number: None

PATIENT
  Age: 71 Year
  Sex: Male

DRUGS (2)
  1. ALLOPURINOL [Suspect]
     Active Substance: ALLOPURINOL
     Indication: Gout
     Dosage: 300 MILLIGRAM, QD, (300MG OD)
     Route: 048
  2. AZATHIOPRINE [Suspect]
     Active Substance: AZATHIOPRINE
     Indication: Joint ankylosis
     Dosage: 50 MILLIGRAM, Q4D, (50MG QDS)
     Route: 048

REACTIONS (4)
  - Pancytopenia [Recovering/Resolving]
  - Neutropenic sepsis [Unknown]
  - Anaemia [Unknown]
  - Medication error [Unknown]
